FAERS Safety Report 5359661-5 (Version None)
Quarter: 2007Q2

REPORT INFORMATION
  Report Type: 
  Country: None (occurrence: None)
  Receive Date: 20070615
  Receipt Date: 20070613
  Transmission Date: 20071010
  Serious: Yes (Hospitalization)
  Sender: FDA-Public Use
  Company Number: US-ABBOTT-07P-163-0370779-00

PATIENT
  Sex: Male

DRUGS (2)
  1. OMNICEF [Suspect]
     Indication: OTITIS MEDIA
     Dates: start: 20070219, end: 20070221
  2. AUGMENTIN '125' [Suspect]
     Indication: OTITIS MEDIA
     Dates: start: 20070217, end: 20070219

REACTIONS (5)
  - CLOSTRIDIAL INFECTION [None]
  - COLITIS [None]
  - DEHYDRATION [None]
  - DIARRHOEA [None]
  - GASTROENTERITIS ROTAVIRUS [None]
